FAERS Safety Report 14783357 (Version 1)
Quarter: 2018Q2

REPORT INFORMATION
  Report Type: Spontaneous
  Country: NL (occurrence: NL)
  Receive Date: 20180420
  Receipt Date: 20180420
  Transmission Date: 20180711
  Serious: Yes (Other)
  Sender: FDA-Public Use
  Company Number: NL-MYLANLABS-2018M1023742

PATIENT
  Age: 62 Year

DRUGS (6)
  1. ENZALUTAMIDE [Interacting]
     Active Substance: ENZALUTAMIDE
     Indication: HORMONE-REFRACTORY PROSTATE CANCER
     Route: 065
  2. FENTANYL. [Interacting]
     Active Substance: FENTANYL
     Indication: METASTASES TO BONE
     Dosage: INCREASED TO 75 MICROG PER HOUR
     Route: 062
  3. DEXAMETHASONE. [Suspect]
     Active Substance: DEXAMETHASONE
     Indication: METASTASES TO BONE
     Route: 065
  4. FENTANYL. [Interacting]
     Active Substance: FENTANYL
     Route: 050
  5. PREGABALIN. [Interacting]
     Active Substance: PREGABALIN
     Indication: METASTASES TO BONE
     Route: 065
  6. AMITRIPTYLINE [Interacting]
     Active Substance: AMITRIPTYLINE
     Indication: METASTASES TO BONE
     Route: 065

REACTIONS (2)
  - Drug ineffective [Recovering/Resolving]
  - Drug interaction [Recovering/Resolving]
